FAERS Safety Report 9828381 (Version 1)
Quarter: 2014Q1

REPORT INFORMATION
  Report Type: Spontaneous
  Country: PT (occurrence: PT)
  Receive Date: 20140117
  Receipt Date: 20140117
  Transmission Date: 20141002
  Serious: Yes (Other)
  Sender: FDA-Public Use
  Company Number: PT-GLAXOSMITHKLINE-B0961080A

PATIENT
  Age: 1 Year
  Sex: Female

DRUGS (2)
  1. ZOREF [Suspect]
     Indication: PERIORBITAL CELLULITIS
     Route: 065
     Dates: start: 20120816, end: 20120822
  2. ROCEPHIN [Concomitant]

REACTIONS (7)
  - Condition aggravated [Recovered/Resolved]
  - Erythema [Recovered/Resolved]
  - Oedema peripheral [Recovered/Resolved]
  - Feeling hot [Recovered/Resolved]
  - Oedema peripheral [Recovered/Resolved]
  - Feeling hot [Recovered/Resolved]
  - Pigmentation disorder [Recovered/Resolved]
